FAERS Safety Report 15265442 (Version 1)
Quarter: 2018Q3

REPORT INFORMATION
  Report Type: Spontaneous
  Country: US (occurrence: US)
  Receive Date: 20180723
  Receipt Date: 20180723
  Transmission Date: 20181010
  Serious: No
  Sender: FDA-Public Use
  Company Number: None

PATIENT
  Age: 54 Year
  Sex: Male

DRUGS (1)
  1. AMPYRA [Suspect]
     Active Substance: DALFAMPRIDINE
     Route: 048
     Dates: start: 20130202

REACTIONS (3)
  - Red cell distribution width decreased [None]
  - Mean cell volume abnormal [None]
  - B-lymphocyte count decreased [None]

NARRATIVE: CASE EVENT DATE: 20180627
